FAERS Safety Report 5303486-3 (Version None)
Quarter: 2007Q2

REPORT INFORMATION
  Report Type: 
  Country: None (occurrence: None)
  Receive Date: 20070420
  Receipt Date: 20070411
  Transmission Date: 20071010
  Serious: Yes (Death, Other)
  Sender: FDA-Public Use
  Company Number: DE-PFIZER INC-2007010010

PATIENT
  Age: 52 Year
  Sex: Female

DRUGS (2)
  1. SUTENT [Suspect]
     Indication: BREAST CANCER METASTATIC
     Dosage: DAILY DOSE:50MG
     Route: 048
     Dates: start: 20061201, end: 20070101
  2. DEXAMETHASONE 0.5MG TAB [Concomitant]

REACTIONS (3)
  - HEPATIC FAILURE [None]
  - LEUKOPENIA [None]
  - TRANSAMINASES INCREASED [None]
